FAERS Safety Report 8833643 (Version 2)
Quarter: 2012Q4

REPORT INFORMATION
  Report Type: Report from Study
  Country: DE (occurrence: DE)
  Receive Date: 20121010
  Receipt Date: 20121024
  Transmission Date: 20130627
  Serious: Yes (Hospitalization)
  Sender: FDA-Public Use
  Company Number: DE-ROCHE-1138992

PATIENT
  Age: 59 Year
  Sex: Female
  Weight: 80 kg

DRUGS (5)
  1. TRASTUZUMAB [Suspect]
     Indication: BREAST CANCER
     Dosage: 6-8 mg/kg
     Route: 042
     Dates: start: 20120816
  2. LAPATINIB [Suspect]
     Indication: BREAST CANCER
     Dosage: 500- 750 mg daily
     Route: 048
     Dates: start: 20120816, end: 20120923
  3. DOXORUBICIN [Suspect]
     Indication: BREAST CANCER
     Route: 042
     Dates: start: 20120816, end: 20120823
  4. PACLITAXEL [Suspect]
     Indication: BREAST CANCER
     Route: 042
     Dates: start: 20120816
  5. CARBOPLATIN [Suspect]
     Indication: BREAST CANCER
     Route: 042
     Dates: start: 20120816

REACTIONS (1)
  - Pulmonary embolism [Recovered/Resolved]
